FAERS Safety Report 25182221 (Version 1)
Quarter: 2025Q2

REPORT INFORMATION
  Report Type: Spontaneous
  Country: US (occurrence: US)
  Receive Date: 20250410
  Receipt Date: 20250410
  Transmission Date: 20250716
  Serious: No
  Sender: KINIKSA PHARMACEUTICALS
  Company Number: US-Kiniksa Pharmaceuticals Ltd.-2024KPU000388

PATIENT
  Age: 59 Year
  Sex: Female

DRUGS (1)
  1. ARCALYST [Suspect]
     Active Substance: RILONACEPT
     Indication: Pericarditis
     Route: 058
     Dates: start: 2021

REACTIONS (12)
  - Loss of consciousness [Unknown]
  - Cardiac disorder [Unknown]
  - Illness [Unknown]
  - Unevaluable event [Unknown]
  - Blood glucose abnormal [Unknown]
  - Dyspnoea [Unknown]
  - Incorrect dose administered [Unknown]
  - Malaise [Unknown]
  - Chest pain [Unknown]
  - Night sweats [Unknown]
  - Poor quality sleep [Unknown]
  - Product dose omission issue [Recovered/Resolved]

NARRATIVE: CASE EVENT DATE: 20240707
